FAERS Safety Report 23133939 (Version 2)
Quarter: 2023Q4

REPORT INFORMATION
  Report Type: Spontaneous
  Country: US (occurrence: US)
  Receive Date: 20231101
  Receipt Date: 20231215
  Transmission Date: 20240109
  Serious: Yes (Hospitalization)
  Sender: FDA-Public Use
  Company Number: US-002147023-NVSC2023US230780

PATIENT
  Sex: Male
  Weight: 104 kg

DRUGS (1)
  1. LEQVIO [Suspect]
     Active Substance: INCLISIRAN SODIUM
     Indication: Hyperlipidaemia
     Dosage: 284 MG /1.5 ML, TWICE YEARLY (LIQUID)
     Route: 058

REACTIONS (1)
  - Pulmonary embolism [Not Recovered/Not Resolved]
